FAERS Safety Report 17663556 (Version 1)
Quarter: 2020Q2

REPORT INFORMATION
  Report Type: Spontaneous
  Country: NL (occurrence: NL)
  Receive Date: 20200413
  Receipt Date: 20200413
  Transmission Date: 20200713
  Serious: Yes (Other)
  Sender: FDA-Public Use
  Company Number: NL-AUROBINDO-AUR-APL-2020-017607

PATIENT
  Sex: Female

DRUGS (3)
  1. MORPHINE PROLONGED-RELEASE TABLET [Suspect]
     Active Substance: MORPHINE
     Dosage: 2 DOSAGE FORM, ONCE A DAY
     Route: 065
  2. OXYCODONE [Suspect]
     Active Substance: OXYCODONE
     Indication: SKIN ULCER
     Dosage: 20 MILLIGRAM, TWO TIMES A DAY
     Route: 065
     Dates: start: 2018
  3. MORPHINE PROLONGED-RELEASE TABLET [Suspect]
     Active Substance: MORPHINE
     Indication: PAIN
     Dosage: 1 DOSAGE FORM, ONCE A DAY
     Route: 065

REACTIONS (6)
  - Product use in unapproved indication [Unknown]
  - Confusional state [Unknown]
  - Feeling abnormal [Unknown]
  - Dementia [Not Recovered/Not Resolved]
  - Hypersomnia [Unknown]
  - Fall [Unknown]

NARRATIVE: CASE EVENT DATE: 20190629
